FAERS Safety Report 17596928 (Version 1)
Quarter: 2020Q1

REPORT INFORMATION
  Report Type: Spontaneous
  Country: CN (occurrence: CN)
  Receive Date: 20200330
  Receipt Date: 20200330
  Transmission Date: 20200409
  Serious: Yes (Other)
  Sender: FDA-Public Use
  Company Number: CN-DRREDDYS-GPV/CHN/20/0121161

PATIENT
  Age: 29 Year
  Sex: Male
  Weight: 74 kg

DRUGS (2)
  1. SODIUM VALPROATE [Concomitant]
     Active Substance: VALPROATE SODIUM
     Indication: BEHAVIOUR DISORDER
     Route: 048
     Dates: start: 20200309, end: 20200322
  2. OLANZAPINE. [Suspect]
     Active Substance: OLANZAPINE
     Indication: MENTAL DISORDER
     Route: 048
     Dates: start: 20200309, end: 20200322

REACTIONS (2)
  - Oculogyric crisis [Recovering/Resolving]
  - Vision blurred [Recovering/Resolving]

NARRATIVE: CASE EVENT DATE: 20200320
